FAERS Safety Report 10250260 (Version 1)
Quarter: 2014Q2

REPORT INFORMATION
  Report Type: Spontaneous
  Country: US (occurrence: US)
  Receive Date: 20140620
  Receipt Date: 20140620
  Transmission Date: 20141212
  Serious: No
  Sender: FDA-Public Use
  Company Number: US-009507513-1406USA001161

PATIENT
  Age: 7 Month
  Sex: Female

DRUGS (1)
  1. COPPERTONE WATER BABIES LOTION SPF-50 [Suspect]
     Indication: PROPHYLAXIS AGAINST SOLAR RADIATION
     Dosage: UNK, PRN
     Route: 061
     Dates: start: 20140517

REACTIONS (2)
  - Eye swelling [Recovering/Resolving]
  - Ocular hyperaemia [Recovering/Resolving]
